FAERS Safety Report 12551211 (Version 3)
Quarter: 2018Q1

REPORT INFORMATION
  Report Type: Report from Study
  Country: DE (occurrence: DE)
  Receive Date: 20160713
  Receipt Date: 20180320
  Transmission Date: 20180508
  Serious: Yes (Hospitalization)
  Sender: FDA-Public Use
  Company Number: DE-ROCHE-1793201

PATIENT
  Age: 75 Year
  Sex: Female

DRUGS (12)
  1. TOCILIZUMAB. [Suspect]
     Active Substance: TOCILIZUMAB
     Indication: RHEUMATOID ARTHRITIS
     Route: 042
     Dates: start: 201409, end: 2015
  2. ORENCIA [Suspect]
     Active Substance: ABATACEPT
     Indication: RHEUMATOID ARTHRITIS
     Route: 065
     Dates: start: 200905, end: 200911
  3. ENBREL [Suspect]
     Active Substance: ETANERCEPT
     Indication: RHEUMATOID ARTHRITIS
     Route: 065
     Dates: start: 200811, end: 200901
  4. RAMIPRIL. [Concomitant]
     Active Substance: RAMIPRIL
  5. FUROSEMID [Concomitant]
     Active Substance: FUROSEMIDE
  6. TOCILIZUMAB. [Suspect]
     Active Substance: TOCILIZUMAB
     Indication: RHEUMATOID ARTHRITIS
     Route: 058
     Dates: end: 20160401
  7. THYROXIN [Concomitant]
     Active Substance: LEVOTHYROXINE
  8. VERAPAMIL [Concomitant]
     Active Substance: VERAPAMIL HYDROCHLORIDE
  9. ALENDRONIC ACID [Concomitant]
     Active Substance: ALENDRONIC ACID
  10. PREDNISOLON [Concomitant]
     Active Substance: PREDNISOLONE
  11. RITUXIMAB. [Suspect]
     Active Substance: RITUXIMAB
     Indication: RHEUMATOID ARTHRITIS
     Route: 065
     Dates: end: 2007
  12. FOSTER (GERMANY) [Concomitant]

REACTIONS (3)
  - Viral infection [Unknown]
  - Dyspnoea [Unknown]
  - Bronchiectasis [Unknown]

NARRATIVE: CASE EVENT DATE: 20160101
